FAERS Safety Report 6627665-8 (Version None)
Quarter: 2010Q1

REPORT INFORMATION
  Report Type: 
  Country: None (occurrence: None)
  Receive Date: 20100311
  Receipt Date: 20100305
  Transmission Date: 20100710
  Serious: Yes (Hospitalization)
  Sender: FDA-Public Use
  Company Number: ZA-BRISTOL-MYERS SQUIBB COMPANY-14847008

PATIENT
  Age: 49 Year
  Sex: Female

DRUGS (20)
  1. ABATACEPT [Suspect]
     Indication: RHEUMATOID ARTHRITIS
     Dosage: ABAT 250MGIV:05MAR-20AUG09:IV/SC (COURSE:7) ABATA 125MGSC:05MAR-20AUG09 +20AUG09-ONG (COURSE:24)
     Route: 058
     Dates: start: 20090305
  2. METHOTREXATE [Suspect]
     Indication: RHEUMATOID ARTHRITIS
     Route: 048
     Dates: start: 20090126
  3. FOLIC ACID [Concomitant]
     Dates: start: 20090430
  4. AMITRIPTYLINE HCL [Concomitant]
     Dosage: NOCT
     Dates: start: 19980424
  5. PARACETAMOL [Concomitant]
     Indication: PAIN
     Route: 048
     Dates: start: 20050424
  6. PARACETAMOL [Concomitant]
     Indication: RHEUMATOID ARTHRITIS
     Route: 048
     Dates: start: 20050424
  7. DICLOFENAC [Concomitant]
     Indication: PAIN
     Dosage: TABS
     Route: 048
     Dates: start: 20070305
  8. DICLOFENAC [Concomitant]
     Indication: RHEUMATOID ARTHRITIS
     Dosage: TABS
     Route: 048
     Dates: start: 20070305
  9. IBUPROFEN [Concomitant]
     Indication: PAIN
     Dosage: 1 DF=1 UNIT NOS
     Route: 048
     Dates: start: 20090126
  10. IBUPROFEN [Concomitant]
     Indication: RHEUMATOID ARTHRITIS
     Dosage: 1 DF=1 UNIT NOS
     Route: 048
     Dates: start: 20090126
  11. MUCAINE [Concomitant]
     Indication: DYSPEPSIA
     Route: 048
     Dates: start: 20080101
  12. BUDESONIDE [Concomitant]
     Indication: ASTHMA
     Dosage: 1 DF=1 PUFF
     Route: 055
     Dates: start: 20090328
  13. SALBUTAMOL [Concomitant]
     Indication: ASTHMA
     Route: 055
     Dates: start: 20090319
  14. PREDNISONE [Concomitant]
     Indication: RHEUMATOID ARTHRITIS
     Route: 048
     Dates: start: 20090822
  15. PROMETHAZINE [Concomitant]
     Indication: PRURITUS
     Route: 048
     Dates: start: 20091104, end: 20091106
  16. HEPARIN [Concomitant]
     Indication: PROPHYLAXIS
     Route: 058
     Dates: start: 20091104, end: 20091109
  17. VITAMIN A [Concomitant]
     Indication: PROPHYLAXIS
     Route: 048
     Dates: start: 20091105, end: 20091105
  18. CEFTRIAXONE [Concomitant]
     Indication: SINUSITIS
     Route: 042
     Dates: start: 20091105, end: 20091109
  19. ENOXAPARIN SODIUM [Concomitant]
     Indication: PROPHYLAXIS
     Route: 058
     Dates: start: 20091105, end: 20091108
  20. VOLUVEN [Concomitant]
     Indication: PROPHYLAXIS
     Route: 042
     Dates: start: 20091105, end: 20091105

REACTIONS (3)
  - HEPATITIS [None]
  - PNEUMONIA [None]
  - SINUSITIS [None]
